FAERS Safety Report 10177994 (Version 1)
Quarter: 2014Q2

REPORT INFORMATION
  Report Type: Spontaneous
  Country: AU (occurrence: AU)
  Receive Date: 20140516
  Receipt Date: 20140516
  Transmission Date: 20141212
  Serious: Yes (Hospitalization, Other)
  Sender: FDA-Public Use
  Company Number: PHHY2014AU058187

PATIENT
  Age: 35 Year
  Sex: Male

DRUGS (1)
  1. CODEINE+IBUPROFEN [Suspect]
     Indication: ANALGESIC THERAPY
     Dosage: 90 DF, (18000MG IBUPROFEN AND 450-1153MG OF CODEINE)
     Dates: start: 2003

REACTIONS (12)
  - Small intestinal obstruction [Recovering/Resolving]
  - Abdominal pain [Unknown]
  - Nausea [Unknown]
  - Vomiting [Unknown]
  - Constipation [Unknown]
  - Decreased appetite [Unknown]
  - Abdominal distension [Unknown]
  - Drug abuse [Unknown]
  - Delirium [Unknown]
  - Drug dependence [Unknown]
  - Withdrawal syndrome [Unknown]
  - Salivary hypersecretion [None]
